FAERS Safety Report 7001447-X (Version None)
Quarter: 2010Q3

REPORT INFORMATION
  Report Type: 
  Country: None (occurrence: None)
  Receive Date: 20100920
  Receipt Date: 20100308
  Transmission Date: 20110219
  Serious: No
  Sender: FDA-Public Use
  Company Number: US-ASTRAZENECA-2010SE10111

PATIENT
  Age: 18002 Day
  Sex: Female
  Weight: 104.3 kg

DRUGS (2)
  1. SEROQUEL [Suspect]
     Indication: BIPOLAR I DISORDER
     Route: 048
  2. LEXAPRO [Concomitant]
     Indication: DEPRESSION
     Route: 065

REACTIONS (5)
  - ABDOMINAL DISCOMFORT [None]
  - DRUG DOSE OMISSION [None]
  - INSOMNIA [None]
  - TREMOR [None]
  - VOMITING [None]
